FAERS Safety Report 11531755 (Version 2)
Quarter: 2015Q3

REPORT INFORMATION
  Report Type: Spontaneous
  Country: BR (occurrence: BR)
  Receive Date: 20150921
  Receipt Date: 20150929
  Transmission Date: 20151125
  Serious: Yes (Other)
  Sender: FDA-Public Use
  Company Number: CHPA2015BR010171

PATIENT
  Sex: Male
  Weight: 70 kg

DRUGS (1)
  1. BUFFERIN [Suspect]
     Active Substance: ASPIRIN
     Indication: ANGIOPLASTY
     Dosage: 1 DF, QD
     Route: 048
     Dates: start: 2006, end: 201506

REACTIONS (2)
  - Chest pain [Recovered/Resolved]
  - Malaise [Recovered/Resolved]
